FAERS Safety Report 8817297 (Version 4)
Quarter: 2014Q3

REPORT INFORMATION
  Report Type: Spontaneous
  Country: US (occurrence: US)
  Receive Date: 20121004
  Receipt Date: 20140818
  Transmission Date: 20150326
  Serious: Yes (Hospitalization, Other)
  Sender: FDA-Public Use
  Company Number: US-009507513-2012SP035096

PATIENT
  Sex: Female
  Weight: 58.96 kg

DRUGS (3)
  1. NUVARING [Suspect]
     Active Substance: ETHINYL ESTRADIOL\ETONOGESTREL
     Indication: CONTRACEPTION
     Dosage: UNK
     Route: 067
  2. MAXALT [Concomitant]
     Active Substance: RIZATRIPTAN BENZOATE
     Indication: MIGRAINE
  3. NUVARING [Suspect]
     Active Substance: ETHINYL ESTRADIOL\ETONOGESTREL
     Dosage: IN FOR 3 WEEKS, OUT FOR 1
     Route: 067
     Dates: start: 20100507, end: 20100701

REACTIONS (13)
  - Vaginal haemorrhage [Unknown]
  - Gastrooesophageal reflux disease [Unknown]
  - Abdominal pain lower [Unknown]
  - Pulmonary embolism [Unknown]
  - Gastrointestinal disorder [Unknown]
  - Rosacea [Unknown]
  - Pregnancy [Recovered/Resolved]
  - Ectropion of cervix [Unknown]
  - Menorrhagia [Unknown]
  - Mitral valve incompetence [Unknown]
  - Cystitis [Unknown]
  - Haemorrhoids thrombosed [Unknown]
  - Genital herpes [Unknown]

NARRATIVE: CASE EVENT DATE: 200402
